FAERS Safety Report 7010504-3 (Version None)
Quarter: 2010Q3

REPORT INFORMATION
  Report Type: 
  Country: None (occurrence: None)
  Receive Date: 20100909
  Receipt Date: 20100621
  Transmission Date: 20110219
  Serious: Yes (Hospitalization)
  Sender: FDA-Public Use
  Company Number: 2010SP035909

PATIENT
  Sex: Female

DRUGS (1)
  1. SAPHRIS [Suspect]
     Indication: BIPOLAR DISORDER
     Dosage: 10 MG ; BID ; PO
     Route: 048

REACTIONS (3)
  - AKATHISIA [None]
  - DEPRESSION [None]
  - INCORRECT ROUTE OF DRUG ADMINISTRATION [None]
